FAERS Safety Report 14779947 (Version 1)
Quarter: 2018Q2

REPORT INFORMATION
  Report Type: Spontaneous
  Country: US (occurrence: US)
  Receive Date: 20180419
  Receipt Date: 20180419
  Transmission Date: 20180711
  Serious: No
  Sender: FDA-Public Use
  Company Number: US-MYLANLABS-2018M1024035

PATIENT
  Age: 86 Year
  Sex: Male
  Weight: 53.97 kg

DRUGS (6)
  1. MUSE [Suspect]
     Active Substance: ALPROSTADIL
     Dosage: 250 ?G, UNK
     Route: 066
     Dates: start: 20180305
  2. MUSE [Suspect]
     Active Substance: ALPROSTADIL
     Dosage: 1000 ?G, UNK
     Route: 066
     Dates: start: 20180305
  3. METOPROLOL. [Concomitant]
     Active Substance: METOPROLOL
     Indication: HYPOTENSION
     Dosage: UNK, BID
     Route: 048
  4. MUSE [Suspect]
     Active Substance: ALPROSTADIL
     Indication: ERECTILE DYSFUNCTION
     Dosage: 1000 ?G, UNK
     Route: 066
     Dates: start: 20180223
  5. MUSE [Suspect]
     Active Substance: ALPROSTADIL
     Indication: ERECTILE DYSFUNCTION
     Dosage: 250 ?G, UNK
     Route: 066
     Dates: start: 201710, end: 20180223
  6. MUSE [Suspect]
     Active Substance: ALPROSTADIL
     Indication: ERECTILE DYSFUNCTION
     Dosage: 125 ?G, UNK
     Route: 066
     Dates: start: 201709, end: 201710

REACTIONS (5)
  - Drug ineffective [Unknown]
  - Arthralgia [Recovered/Resolved]
  - Wrong technique in product usage process [Recovered/Resolved]
  - Fatigue [Recovered/Resolved]
  - Off label use [Recovered/Resolved]

NARRATIVE: CASE EVENT DATE: 201709
